FAERS Safety Report 15946913 (Version 2)
Quarter: 2019Q1

REPORT INFORMATION
  Report Type: Spontaneous
  Country: US (occurrence: US)
  Receive Date: 20190211
  Receipt Date: 20190305
  Transmission Date: 20190417
  Serious: No
  Sender: FDA-Public Use
  Company Number: US-PFIZER INC-2019021666

PATIENT
  Age: 58 Year
  Sex: Female

DRUGS (1)
  1. IBRANCE [Suspect]
     Active Substance: PALBOCICLIB
     Indication: BREAST CANCER FEMALE
     Dosage: 125 MG, CYCLIC, [21 DAYS ON, 7 OFF.]
     Route: 048
     Dates: start: 201809

REACTIONS (3)
  - White blood cell count decreased [Not Recovered/Not Resolved]
  - Fatigue [Recovering/Resolving]
  - Neutrophil count decreased [Not Recovered/Not Resolved]
